FAERS Safety Report 20543046 (Version 3)
Quarter: 2022Q2

REPORT INFORMATION
  Report Type: Report from Study
  Country: DO (occurrence: DO)
  Receive Date: 20220302
  Receipt Date: 20220415
  Transmission Date: 20220721
  Serious: Yes (Death, Hospitalization, Other)
  Sender: FDA-Public Use
  Company Number: DO-NOVARTISPH-NVSC2021DO297322

PATIENT
  Sex: Female

DRUGS (1)
  1. KISQALI [Suspect]
     Active Substance: RIBOCICLIB
     Indication: Breast cancer
     Dosage: 600 MG, QD
     Route: 048
     Dates: start: 20210112

REACTIONS (6)
  - Cardiac arrest [Fatal]
  - Amoebiasis [Unknown]
  - Tumour marker increased [Unknown]
  - Skin discolouration [Unknown]
  - Fatigue [Unknown]
  - Dry skin [Unknown]
